FAERS Safety Report 5670033-6 (Version None)
Quarter: 2008Q1

REPORT INFORMATION
  Report Type: 
  Country: None (occurrence: None)
  Receive Date: 20080317
  Receipt Date: 20080303
  Transmission Date: 20080703
  Serious: No
  Sender: FDA-Public Use
  Company Number: US-GILEAD-2008-0015465

PATIENT
  Sex: Male

DRUGS (6)
  1. LETAIRIS [Suspect]
     Indication: PULMONARY HYPERTENSION
     Dates: start: 20070701
  2. SPIRONOLACTONE [Concomitant]
  3. COUMADIN [Concomitant]
  4. VICODIN [Concomitant]
     Dosage: 1000/10MG
     Route: 048
  5. TEMAZEPAM [Concomitant]
  6. COMBIVENT [Concomitant]

REACTIONS (3)
  - BRONCHITIS [None]
  - HYPOXIA [None]
  - NASOPHARYNGITIS [None]
